FAERS Safety Report 6923324-2 (Version None)
Quarter: 2010Q3

REPORT INFORMATION
  Report Type: 
  Country: None (occurrence: None)
  Receive Date: 20100813
  Receipt Date: 20100805
  Transmission Date: 20110219
  Serious: Yes (Hospitalization)
  Sender: FDA-Public Use
  Company Number: PHHO2010DE04894

PATIENT
  Sex: Male

DRUGS (8)
  1. STALEVO 100 [Suspect]
     Indication: PARKINSON'S DISEASE
     Dosage: 50 / 12.5 / 200 MG TWICE DAILY
     Dates: start: 20091109, end: 20100118
  2. SINEMET [Suspect]
     Indication: PARKINSON'S DISEASE
     Dosage: UNK
     Dates: start: 20080526
  3. CABERGOLINE [Suspect]
     Indication: PARKINSON'S DISEASE
     Dosage: UNK
     Dates: start: 20080526
  4. PROCAIN [Suspect]
     Indication: LOCAL ANAESTHESIA
     Dosage: UNK
     Dates: start: 20090209
  5. ORTOTON [Suspect]
     Indication: MUSCLE RELAXANT THERAPY
     Dosage: UNK
     Dates: start: 20090513
  6. NOVAMINSULFON [Concomitant]
     Indication: ANALGESIC THERAPY
     Dosage: UNK
     Dates: start: 20090907
  7. TRAMAL [Concomitant]
     Indication: PARKINSONISM
     Dosage: UNK
     Dates: start: 20080526
  8. ZALDIAR [Concomitant]
     Indication: PARKINSONISM
     Dosage: UNK
     Dates: start: 20080526

REACTIONS (2)
  - HALLUCINATION, VISUAL [None]
  - RESTLESSNESS [None]
